FAERS Safety Report 25017065 (Version 1)
Quarter: 2025Q1

REPORT INFORMATION
  Report Type: Spontaneous
  Country: US (occurrence: US)
  Receive Date: 20250227
  Receipt Date: 20250227
  Transmission Date: 20250408
  Serious: Yes (Other)
  Sender: CSL BEHRING
  Company Number: US-BEH-2025197039

PATIENT
  Age: 59 Year
  Sex: Female
  Weight: 55.5 kg

DRUGS (3)
  1. MIRCERA [Suspect]
     Active Substance: METHOXY POLYETHYLENE GLYCOL-EPOETIN BETA
     Indication: Nephrogenic anaemia
     Dosage: 75 ?G, QOW
     Route: 040
     Dates: start: 20250130, end: 20250215
  2. HECTOROL [Concomitant]
     Active Substance: DOXERCALCIFEROL
     Route: 040
  3. VENOFER [Concomitant]
     Active Substance: IRON SUCROSE
     Route: 040

REACTIONS (7)
  - Drug hypersensitivity [Unknown]
  - Unresponsive to stimuli [Unknown]
  - Nausea [Unknown]
  - Vomiting [Unknown]
  - Drug hypersensitivity [Unknown]
  - Unresponsive to stimuli [Unknown]
  - Blood pressure systolic increased [Unknown]

NARRATIVE: CASE EVENT DATE: 20250130
